FAERS Safety Report 4668395-1 (Version None)
Quarter: 2005Q2

REPORT INFORMATION
  Report Type: 
  Country: None (occurrence: None)
  Receive Date: 20050518
  Receipt Date: 20050421
  Transmission Date: 20051028
  Serious: Yes (Hospitalization)
  Sender: FDA-Public Use
  Company Number: B0378001A

PATIENT
  Age: 74 Year
  Sex: Female
  Weight: 51.8915 kg

DRUGS (10)
  1. VALTREX [Suspect]
     Indication: HERPES ZOSTER
     Dosage: 500 MG / THREE TIMES PER DAY / ORAL
     Route: 048
     Dates: start: 20041101, end: 20041124
  2. LOXOPROFEN TABLET (LOXOPROFEN) [Suspect]
     Indication: HERPES ZOSTER
     Dosage: 60 MG / THREE TIMES PER DAY / ORAL
     Route: 048
     Dates: start: 20041104, end: 20041124
  3. CARBOCISTEINE [Concomitant]
  4. AMBROXOL [Concomitant]
  5. BEZAFIBRATE [Concomitant]
  6. CALCITONIN [Concomitant]
  7. ALENDRONIC ACID [Concomitant]
  8. CALCITRIOL [Concomitant]
  9. MENATETRENONE [Concomitant]
  10. MIANSERIN HYDROCHLORIDE [Concomitant]

REACTIONS (2)
  - INTERSTITIAL LUNG DISEASE [None]
  - LYMPHOCYTE STIMULATION TEST POSITIVE [None]
